FAERS Safety Report 16863005 (Version 1)
Quarter: 2019Q3

REPORT INFORMATION
  Report Type: Report from Study
  Country: None (occurrence: NZ)
  Receive Date: 20190927
  Receipt Date: 20190927
  Transmission Date: 20191005
  Serious: Yes (Death)
  Sender: FDA-Public Use
  Company Number: NZ-US WORLDMEDS, LLC-USW201909-001797

PATIENT
  Age: 72 Year
  Sex: Female

DRUGS (1)
  1. APOMORPHINE HYDROCHLORIDE [Suspect]
     Active Substance: APOMORPHINE HYDROCHLORIDE
     Indication: PRODUCT USED FOR UNKNOWN INDICATION
     Dosage: CONTINUOUS INFUSION
     Route: 058

REACTIONS (1)
  - Cerebral haemorrhage [Fatal]
